FAERS Safety Report 9752450 (Version 1)
Quarter: 2013Q4

REPORT INFORMATION
  Report Type: Spontaneous
  Country: BR (occurrence: BR)
  Receive Date: 20131213
  Receipt Date: 20131213
  Transmission Date: 20140711
  Serious: Yes (Other)
  Sender: FDA-Public Use
  Company Number: BR-SA-2013SA127451

PATIENT
  Age: 26 Year
  Sex: Female

DRUGS (4)
  1. STILNOX [Suspect]
     Indication: SLEEP DISORDER
     Dosage: STRENGTH 10 MG
     Route: 048
     Dates: start: 200912
  2. HIDANTAL [Interacting]
     Indication: EPILEPSY
     Route: 048
     Dates: start: 201112
  3. GARDENAL [Interacting]
     Indication: EPILEPSY
     Route: 048
     Dates: start: 201112
  4. ZITHROMAX [Interacting]
     Indication: TONSILLITIS
     Dosage: FREQ: FOR 5 DAYS
     Route: 065
     Dates: start: 20131204

REACTIONS (9)
  - Subdural haematoma [Not Recovered/Not Resolved]
  - Drug interaction [Unknown]
  - Post-traumatic epilepsy [Not Recovered/Not Resolved]
  - Arachnoid cyst [Not Recovered/Not Resolved]
  - Oropharyngeal pain [Not Recovered/Not Resolved]
  - Tonsillitis [Not Recovered/Not Resolved]
  - Hyperhidrosis [Not Recovered/Not Resolved]
  - Tremor [Not Recovered/Not Resolved]
  - Visual impairment [Not Recovered/Not Resolved]
